FAERS Safety Report 24131282 (Version 2)
Quarter: 2024Q3

REPORT INFORMATION
  Report Type: Spontaneous
  Country: JP (occurrence: JP)
  Receive Date: 20240724
  Receipt Date: 20240823
  Transmission Date: 20241017
  Serious: Yes (Hospitalization)
  Sender: ACCORD
  Company Number: JP-MLMSERVICE-20240709-PI124619-00134-1

PATIENT
  Age: 94 Year
  Sex: Male
  Weight: 47 kg

DRUGS (6)
  1. EPLERENONE [Suspect]
     Active Substance: EPLERENONE
     Indication: Product used for unknown indication
     Dosage: SELARA 50 MG TABLET, 1 TAB TAKEN ONCE IN THE MORNING
     Route: 048
  2. BUFFERIN [Suspect]
     Active Substance: ASPIRIN
     Indication: Product used for unknown indication
     Dosage: BUFFERRIN 81 MG TABLET, 1 TAB TAKEN ONCE IN THE MORNING
     Route: 048
  3. BISOPROLOL [Suspect]
     Active Substance: BISOPROLOL\BISOPROLOL FUMARATE
     Indication: Product used for unknown indication
     Dosage: BISOPROLOL 5 MG TABLET, 1 TAB TAKEN ONCE IN THE MORNING
     Route: 048
  4. ENTRESTO [Suspect]
     Active Substance: SACUBITRIL\VALSARTAN
     Dosage: ENRESTO (SACUBITRIL/VALSARTAN) 100 MG TABLET, 4 TABS TAKEN ONCE IN THE MORNING
     Route: 048
  5. NIFEDIPINE [Concomitant]
     Active Substance: NIFEDIPINE
  6. ROSUVASTATIN [Concomitant]
     Active Substance: ROSUVASTATIN\ROSUVASTATIN CALCIUM

REACTIONS (1)
  - BRASH syndrome [Recovered/Resolved]
